FAERS Safety Report 25229744 (Version 1)
Quarter: 2025Q2

REPORT INFORMATION
  Report Type: Other
  Country: US (occurrence: US)
  Receive Date: 20250423
  Receipt Date: 20250423
  Transmission Date: 20250717
  Serious: Yes (Hospitalization)
  Sender: ANI
  Company Number: US-ANIPHARMA-022502

PATIENT
  Age: 70 Year
  Sex: Male

DRUGS (4)
  1. LACTULOSE [Suspect]
     Active Substance: LACTULOSE
     Indication: Cirrhosis alcoholic
  2. RIFAXIMIN [Concomitant]
     Active Substance: RIFAXIMIN
     Indication: Antibiotic therapy
  3. PROPOFOL [Concomitant]
     Active Substance: PROPOFOL
     Indication: Hyperammonaemic encephalopathy
  4. SODIUM CHLORIDE [Concomitant]
     Active Substance: SODIUM CHLORIDE
     Indication: Hyperammonaemic encephalopathy

REACTIONS (1)
  - Treatment noncompliance [Unknown]
